FAERS Safety Report 24437551 (Version 1)
Quarter: 2024Q4

REPORT INFORMATION
  Report Type: Spontaneous
  Country: US (occurrence: US)
  Receive Date: 20241015
  Receipt Date: 20241015
  Transmission Date: 20250115
  Serious: No
  Sender: ABBVIE
  Company Number: US-ABBVIE-5959859

PATIENT
  Sex: Female

DRUGS (1)
  1. CYCLOSPORINE [Suspect]
     Active Substance: CYCLOSPORINE
     Indication: Product used for unknown indication
     Dosage: EML0.05%60X0.4MLVIAL USA?STRENGTH-0.05%?DOSAGE FORM-OPHTHALMIC EMULSION
     Route: 047
     Dates: start: 2024

REACTIONS (3)
  - Lacrimation increased [Unknown]
  - Eye pruritus [Unknown]
  - Eye irritation [Unknown]

NARRATIVE: CASE EVENT DATE: 20240101
